FAERS Safety Report 5226723-2 (Version None)
Quarter: 2007Q1

REPORT INFORMATION
  Report Type: 
  Country: None (occurrence: None)
  Receive Date: 20070129
  Receipt Date: 20070116
  Transmission Date: 20070707
  Serious: Yes (Other)
  Sender: FDA-Public Use
  Company Number: 2007303494

PATIENT
  Sex: Female
  Weight: 104.3 kg

DRUGS (6)
  1. BENADRYL [Suspect]
     Indication: FOOD ALLERGY
     Dosage: 2 KAPSEALS 6 TIMES DAILY
     Dates: start: 20030101
  2. ONE-A-DAY (ASCORBIC ACID, CYANOCOBALAMIN, ERGOCALCIFEROL, NICOTINAMIDE [Concomitant]
  3. TYLENOL [Concomitant]
  4. LOXAPINE SUCCINATE [Concomitant]
  5. ZOCOR [Concomitant]
  6. NORVASC [Concomitant]

REACTIONS (1)
  - UTERINE CANCER [None]
